FAERS Safety Report 11870598 (Version 1)
Quarter: 2015Q4

REPORT INFORMATION
  Report Type: Spontaneous
  Country: US (occurrence: None)
  Receive Date: 20151224
  Receipt Date: 20151224
  Transmission Date: 20160305
  Serious: Yes (Hospitalization)
  Sender: FDA-Public Use
  Company Number: None

PATIENT
  Age: 58 Year
  Sex: Male

DRUGS (5)
  1. AETAMINOPHEN [Concomitant]
  2. WARFARIN [Suspect]
     Active Substance: WARFARIN
     Dosage: 8 MG DAILY EXCEPT 6 MG M/F
     Route: 048
  3. FUROSEMIDE. [Concomitant]
     Active Substance: FUROSEMIDE
  4. FERRPUS SULFATE [Concomitant]
  5. ASPIRIN. [Suspect]
     Active Substance: ASPIRIN
     Indication: CORONARY ARTERY DISEASE
     Route: 048
     Dates: start: 20150818, end: 20150818

REACTIONS (3)
  - Large intestine polyp [None]
  - Melaena [None]
  - Gastrointestinal haemorrhage [None]

NARRATIVE: CASE EVENT DATE: 20150818
